FAERS Safety Report 6195297-4 (Version None)
Quarter: 2009Q2

REPORT INFORMATION
  Report Type: 
  Country: None (occurrence: None)
  Receive Date: 20090519
  Receipt Date: 20090512
  Transmission Date: 20091009
  Serious: Yes (Other)
  Sender: FDA-Public Use
  Company Number: US-ELI_LILLY_AND_COMPANY-US200905002400

PATIENT
  Sex: Male

DRUGS (11)
  1. HUMALOG MIX 75/25 [Suspect]
     Indication: TYPE 2 DIABETES MELLITUS
     Dosage: 30 U, EACH MORNING
     Dates: start: 19970101
  2. HUMALOG MIX 75/25 [Suspect]
     Dosage: 40 U, EACH EVENING
     Dates: start: 19970101
  3. ATENOLOL [Concomitant]
  4. CAPTOPRIL [Concomitant]
  5. WARFARIN SODIUM [Concomitant]
  6. PLAVIX [Concomitant]
  7. NORTRIPTYLINE HCL [Concomitant]
  8. OMEPRAZOLE [Concomitant]
  9. HYDROCHLOROTHIAZIDE [Concomitant]
  10. LOVASTATIN [Concomitant]
  11. PENTOXIFYLLINE [Concomitant]

REACTIONS (3)
  - CATARACT [None]
  - GANGRENE [None]
  - IMPAIRED HEALING [None]
